FAERS Safety Report 13698391 (Version 2)
Quarter: 2017Q3

REPORT INFORMATION
  Report Type: Spontaneous
  Country: DE (occurrence: DE)
  Receive Date: 20170628
  Receipt Date: 20170705
  Transmission Date: 20171127
  Serious: Yes (Death)
  Sender: FDA-Public Use
  Company Number: DE-SA-2017SA115000

PATIENT
  Age: 0 Day

DRUGS (1)
  1. LEMTRADA [Suspect]
     Active Substance: ALEMTUZUMAB
     Indication: RELAPSING-REMITTING MULTIPLE SCLEROSIS
     Route: 064
     Dates: start: 20160930

REACTIONS (2)
  - Maternal exposure before pregnancy [Fatal]
  - Death neonatal [Fatal]

NARRATIVE: CASE EVENT DATE: 201706
